FAERS Safety Report 16359885 (Version 1)
Quarter: 2019Q2

REPORT INFORMATION
  Report Type: Spontaneous
  Country: US (occurrence: US)
  Receive Date: 20190419
  Receipt Date: 20190419
  Transmission Date: 20190711
  Serious: No
  Sender: FDA-Public Use
  Company Number: None

PATIENT
  Age: 20 Year
  Sex: Male

DRUGS (1)
  1. INVEGA SUSTENNA [Suspect]
     Active Substance: PALIPERIDONE PALMITATE
     Dosage: ?          OTHER
     Route: 030
     Dates: start: 201805

REACTIONS (2)
  - Product prescribing error [None]
  - Product dispensing error [None]

NARRATIVE: CASE EVENT DATE: 20180927
